FAERS Safety Report 5060875-2 (Version None)
Quarter: 2006Q3

REPORT INFORMATION
  Report Type: 
  Country: None (occurrence: None)
  Receive Date: 20060719
  Receipt Date: 20060719
  Transmission Date: 20061208
  Serious: No
  Sender: FDA-Public Use
  Company Number: None

PATIENT
  Age: 55 Year
  Sex: Female

DRUGS (1)
  1. INFERGEN [Suspect]
     Indication: HEPATITIS C
     Dosage: 9 MCG 3 TIMES PER WEEK SQ
     Route: 058
     Dates: start: 20060301, end: 20060718

REACTIONS (3)
  - ARTHRALGIA [None]
  - DRUG INEFFECTIVE [None]
  - JOINT DISLOCATION [None]
